FAERS Safety Report 9958679 (Version 3)
Quarter: 2014Q1

REPORT INFORMATION
  Report Type: Spontaneous
  Country: CA (occurrence: CA)
  Receive Date: 20140305
  Receipt Date: 20140317
  Transmission Date: 20141002
  Serious: Yes (Other)
  Sender: FDA-Public Use
  Company Number: CA-AMGEN-CANSP2013068342

PATIENT
  Age: 83 Year
  Sex: Female
  Weight: 50.34 kg

DRUGS (7)
  1. PROLIA [Suspect]
     Indication: OSTEOPOROSIS POSTMENOPAUSAL
     Dosage: 60 MG, Q6MO
     Route: 058
     Dates: start: 20130926
  2. CALCIUM [Concomitant]
     Dosage: UNK UNK, BID
     Route: 065
  3. VITAMIN D                          /00107901/ [Concomitant]
     Dosage: UNK UNK, BID
     Route: 065
  4. COLACE [Concomitant]
     Route: 065
  5. SENNA                              /00142201/ [Concomitant]
     Route: 065
  6. HYDROMORPH CONTIN [Concomitant]
     Indication: BONE PAIN
     Dosage: 3 MG, UNK
     Route: 065
  7. EVISTA [Concomitant]
     Dosage: 60 MG, UNK
     Route: 048

REACTIONS (8)
  - Blood pressure increased [Unknown]
  - Dizziness [Recovered/Resolved]
  - Photopsia [Recovered/Resolved]
  - Headache [Not Recovered/Not Resolved]
  - Myalgia [Unknown]
  - Bone pain [Unknown]
  - Oedema peripheral [Unknown]
  - Hypertension [Not Recovered/Not Resolved]
